FAERS Safety Report 5126845-0 (Version None)
Quarter: 2006Q4

REPORT INFORMATION
  Report Type: 
  Country: None (occurrence: None)
  Receive Date: 20061013
  Receipt Date: 20060816
  Transmission Date: 20070319
  Serious: Yes (Other)
  Sender: FDA-Public Use
  Company Number: US-AMGEN-US190403

PATIENT
  Sex: Female

DRUGS (15)
  1. ENBREL [Suspect]
     Indication: RHEUMATOID ARTHRITIS
     Route: 058
     Dates: start: 20021201, end: 20060401
  2. METHOTREXATE [Concomitant]
  3. VICODIN [Concomitant]
  4. PREDNISONE TAB [Concomitant]
  5. FOLIC ACID [Concomitant]
  6. ELAVIL [Concomitant]
  7. EFFEXOR [Concomitant]
  8. PLAQUENIL [Concomitant]
  9. LIPITOR [Concomitant]
  10. PROTONIX [Concomitant]
  11. SYNTHROID [Concomitant]
  12. DETROL [Concomitant]
  13. GLUCOPHAGE [Concomitant]
  14. CELEBREX [Concomitant]
  15. NITROFURANTOIN [Concomitant]

REACTIONS (4)
  - BLINDNESS [None]
  - CEREBROVASCULAR ACCIDENT [None]
  - COORDINATION ABNORMAL [None]
  - NUCLEAR MAGNETIC RESONANCE IMAGING ABNORMAL [None]
